FAERS Safety Report 19854926 (Version 2)
Quarter: 2021Q4

REPORT INFORMATION
  Report Type: Report from Study
  Country: KR (occurrence: KR)
  Receive Date: 20210920
  Receipt Date: 20211013
  Transmission Date: 20220303
  Serious: Yes (Death)
  Sender: FDA-Public Use
  Company Number: KR-GLAXOSMITHKLINE-KR2021183511

PATIENT
  Age: 76 Year
  Sex: Male
  Weight: 49.1 kg

DRUGS (33)
  1. DOSTARLIMAB [Suspect]
     Active Substance: DOSTARLIMAB
     Indication: Non-small cell lung cancer
     Dosage: DOSE AT CYCLE 1 - DAY 1
     Dates: start: 20210415, end: 20210415
  2. DOSTARLIMAB [Suspect]
     Active Substance: DOSTARLIMAB
     Dosage: DOSE AT DAY 1
     Dates: start: 20210503, end: 20210503
  3. DOSTARLIMAB [Suspect]
     Active Substance: DOSTARLIMAB
     Dosage: DOSE AT DAY 1
     Dates: start: 20210526, end: 20210526
  4. DOSTARLIMAB [Suspect]
     Active Substance: DOSTARLIMAB
     Dosage: DOSE AT DAY 1
     Dates: start: 20210616, end: 20210616
  5. DOSTARLIMAB [Suspect]
     Active Substance: DOSTARLIMAB
     Dosage: DOSE AT DAY 1
     Dates: start: 20210707, end: 20210707
  6. PEMETREXED [Suspect]
     Active Substance: PEMETREXED
     Indication: Non-small cell lung cancer
     Dosage: DOSE AT CYCLE 1 - DAY 1
     Route: 042
     Dates: start: 20210415, end: 20210415
  7. PEMETREXED [Suspect]
     Active Substance: PEMETREXED
     Dosage: DOSE AT DAY 1
     Route: 042
     Dates: start: 20210503, end: 20210503
  8. PEMETREXED [Suspect]
     Active Substance: PEMETREXED
     Dosage: DOSE AT DAY 1
     Route: 042
     Dates: start: 20210526, end: 20210526
  9. PEMETREXED [Suspect]
     Active Substance: PEMETREXED
     Dosage: DOSE AT DAY 1
     Route: 042
     Dates: start: 20210616, end: 20210616
  10. PEMETREXED [Suspect]
     Active Substance: PEMETREXED
     Dosage: DOSE AT DAY 1
     Route: 042
     Dates: start: 20210707, end: 20210707
  11. CARBOPLATIN [Suspect]
     Active Substance: CARBOPLATIN
     Indication: Non-small cell lung cancer
     Dosage: DOSE AT CYCLE 1 - DAY 1
     Route: 042
     Dates: start: 20210415, end: 20210415
  12. CARBOPLATIN [Suspect]
     Active Substance: CARBOPLATIN
     Dosage: DOSE AT DAY 1
     Route: 042
     Dates: start: 20210503, end: 20210503
  13. CARBOPLATIN [Suspect]
     Active Substance: CARBOPLATIN
     Dosage: DOSE AT DAY 1
     Route: 042
     Dates: start: 20210526, end: 20210526
  14. CARBOPLATIN [Suspect]
     Active Substance: CARBOPLATIN
     Dosage: DOSE AT DAY 1
     Route: 042
     Dates: start: 20210616, end: 20210616
  15. METFORMIN HYDROCHLORIDE\VILDAGLIPTIN [Concomitant]
     Active Substance: METFORMIN HYDROCHLORIDE\VILDAGLIPTIN
     Indication: Diabetes mellitus
     Dosage: 1 TABLET (FREQUENCY = TWICE DAILY)
     Route: 048
     Dates: start: 2015, end: 20210827
  16. ERDOSTEINE [Concomitant]
     Active Substance: ERDOSTEINE
     Indication: Productive cough
     Dosage: 300 MG (FREQUENCY = THREE TIMES DAILY)
     Route: 048
     Dates: start: 20210331, end: 20210827
  17. ACTINAMIDE INJECTION [Concomitant]
     Indication: Premedication
     Dosage: 1 MG (FREQUENCY = OTHER: Q3CYCLE)
     Route: 030
     Dates: start: 20210415, end: 20210827
  18. FOLCID [Concomitant]
     Indication: Premedication
     Dosage: 1 MG (FREQUENCY = ONCE DAILY)
     Route: 048
     Dates: start: 20210415, end: 20210827
  19. DEXAMETHASONE [Concomitant]
     Active Substance: DEXAMETHASONE
     Indication: Premedication
     Dosage: 4 MG (FREQUENCY = TWICE DAILY)
     Route: 048
     Dates: start: 20210415, end: 20210827
  20. MAGNESIUM OXIDE [Concomitant]
     Active Substance: MAGNESIUM OXIDE
     Indication: Constipation prophylaxis
     Dosage: 500 MG (FREQUENCY = AS NEEDED)
     Route: 048
     Dates: start: 20210415, end: 20210827
  21. METOCLOPRAMIDE HYDROCHLORIDE [Concomitant]
     Active Substance: METOCLOPRAMIDE HYDROCHLORIDE
     Indication: Prophylaxis of nausea and vomiting
     Dosage: 10 MG (FREQUENCY = AS NEEDED)
     Route: 048
     Dates: start: 20210415, end: 20210827
  22. LOPERAMIDE [Concomitant]
     Active Substance: LOPERAMIDE
     Indication: Prophylaxis against diarrhoea
     Dosage: 2 MG (FREQUENCY = AS NEEDED)
     Route: 048
     Dates: start: 20210415, end: 20210827
  23. TANTUM GARGLE [Concomitant]
     Indication: Prophylaxis
     Dosage: 100 ML (FREQUENCY = AS NEEDED)
     Route: 050
     Dates: start: 20210415, end: 20210827
  24. DUPHALAC EASY SYRUP [Concomitant]
     Indication: Constipation prophylaxis
     Dosage: 15 ML (FREQUENCY = AS NEEDED)
     Route: 048
     Dates: start: 20210415, end: 20210827
  25. OXYGEN [Concomitant]
     Active Substance: OXYGEN
     Indication: Dyspnoea
     Dosage: 3 L/MIN (FREQUENCY = AS NEEDED)
     Route: 055
     Dates: start: 20210728, end: 20210827
  26. ULTRACET [Concomitant]
     Active Substance: ACETAMINOPHEN\TRAMADOL HYDROCHLORIDE
     Indication: Musculoskeletal chest pain
     Dosage: 1 TABLET (FREQUENCY = TWICE DAILY)
     Route: 048
     Dates: start: 20210804, end: 20210827
  27. LEVOFLOXACIN [Concomitant]
     Active Substance: LEVOFLOXACIN
     Indication: Pneumonitis
     Dosage: 500 MG (FREQUENCY = ONCE DAILY)
     Route: 048
     Dates: start: 20210804, end: 20210827
  28. BANAN [Concomitant]
     Active Substance: CEFPODOXIME PROXETIL
     Indication: Pneumonitis
     Dosage: 100 MG (FREQUENCY = TWICE DAILY)
     Route: 048
     Dates: start: 20210804, end: 20210827
  29. SULFAMETHOXAZOLE\TRIMETHOPRIM [Concomitant]
     Active Substance: SULFAMETHOXAZOLE\TRIMETHOPRIM
     Indication: Pneumonitis
     Dosage: 2 TABLET (FREQUENCY = ONCE DAILY)
     Route: 048
     Dates: start: 20210804, end: 20210827
  30. RABEPRAZOLE SODIUM [Concomitant]
     Active Substance: RABEPRAZOLE SODIUM
     Indication: Gastritis prophylaxis
     Dosage: 10 MG (FREQUENCY = ONCE DAILY)
     Route: 048
     Dates: start: 20210804, end: 20210827
  31. PREDNISOLONE [Concomitant]
     Active Substance: PREDNISOLONE
     Indication: Pneumonitis
     Dosage: 10 MG (FREQUENCY = TWICE DAILY)
     Route: 048
     Dates: start: 20210825, end: 20210827
  32. MEGACE F SUSPENSION [Concomitant]
     Indication: Prophylaxis
     Dosage: 5 ML (FREQUENCY = ONCE DAILY)
     Route: 048
     Dates: start: 20210825, end: 20210827
  33. SPIRIVA RESPIMAT [Concomitant]
     Active Substance: TIOTROPIUM BROMIDE
     Indication: Respiratory disorder prophylaxis
     Dosage: 1 BTL (FREQUENCY = ONCE DAILY)
     Route: 055
     Dates: start: 20210825, end: 20210827

REACTIONS (1)
  - Non-small cell lung cancer [Fatal]

NARRATIVE: CASE EVENT DATE: 20210827
